FAERS Safety Report 10635882 (Version 2)
Quarter: 2014Q4

REPORT INFORMATION
  Report Type: Report from Study
  Country: BR (occurrence: BR)
  Receive Date: 20141205
  Receipt Date: 20141205
  Transmission Date: 20150529
  Serious: Yes (Other)
  Sender: FDA-Public Use
  Company Number: BR-ABBVIE-14K-020-1239156-00

PATIENT
  Age: 49 Year
  Sex: Female
  Weight: 89 kg

DRUGS (1)
  1. HUMIRA [Suspect]
     Active Substance: ADALIMUMAB
     Indication: RHEUMATOID ARTHRITIS
     Route: 058
     Dates: start: 20140213

REACTIONS (9)
  - Skin exfoliation [Recovering/Resolving]
  - Injection site erythema [Recovering/Resolving]
  - Blister [Recovering/Resolving]
  - Alopecia [Unknown]
  - Immunodeficiency [Unknown]
  - Generalised erythema [Recovering/Resolving]
  - Wound [Recovering/Resolving]
  - Unevaluable event [Unknown]
  - Psoriasis [Unknown]

NARRATIVE: CASE EVENT DATE: 2014
